FAERS Safety Report 10629112 (Version 1)
Quarter: 2014Q4

REPORT INFORMATION
  Report Type: Spontaneous
  Country: US (occurrence: US)
  Receive Date: 20141205
  Receipt Date: 20141205
  Transmission Date: 20150529
  Serious: No
  Sender: FDA-Public Use
  Company Number: US-BRISTOL-MYERS SQUIBB COMPANY-21223722

PATIENT
  Age: 22 Year
  Sex: Male
  Weight: 90.7 kg

DRUGS (5)
  1. ZOLOFT [Concomitant]
     Active Substance: SERTRALINE HYDROCHLORIDE
  2. GUANFACINE. [Concomitant]
     Active Substance: GUANFACINE
  3. PROPRANOLOL [Concomitant]
     Active Substance: PROPRANOLOL\PROPRANOLOL HYDROCHLORIDE
  4. ABILIFY [Suspect]
     Active Substance: ARIPIPRAZOLE
     Indication: OBSESSIVE-COMPULSIVE DISORDER
     Dosage: 1DF: ONE AND HALF ABILIFY 10 MG TABS
     Dates: start: 2012
  5. ABILIFY [Suspect]
     Active Substance: ARIPIPRAZOLE
     Indication: DEPRESSION
     Dosage: 1DF: ONE AND HALF ABILIFY 10 MG TABS
     Dates: start: 2012

REACTIONS (3)
  - Wrong technique in drug usage process [Unknown]
  - Fatigue [Unknown]
  - Weight increased [Unknown]
